FAERS Safety Report 18775930 (Version 2)
Quarter: 2021Q1

REPORT INFORMATION
  Report Type: Spontaneous
  Country: US (occurrence: US)
  Receive Date: 20210122
  Receipt Date: 20210303
  Transmission Date: 20210419
  Serious: Yes (Hospitalization, Other)
  Sender: FDA-Public Use
  Company Number: US-ELI_LILLY_AND_COMPANY-US202101005777

PATIENT
  Sex: Female
  Weight: 96 kg

DRUGS (1)
  1. BAMLANIVIMAB 700MG [Suspect]
     Active Substance: BAMLANIVIMAB
     Indication: COVID-19
     Dosage: 700 MG, SINGLE
     Route: 042
     Dates: start: 20210110, end: 20210110

REACTIONS (6)
  - Atypical pneumonia [Recovering/Resolving]
  - Dyspnoea exertional [Recovering/Resolving]
  - Pulmonary oedema [Recovering/Resolving]
  - Chronic respiratory disease [Recovering/Resolving]
  - Malaise [Recovering/Resolving]
  - Asthenia [Recovering/Resolving]
